FAERS Safety Report 4657959-7 (Version None)
Quarter: 2005Q2

REPORT INFORMATION
  Report Type: 
  Country: None (occurrence: None)
  Receive Date: 20050510
  Receipt Date: 20050502
  Transmission Date: 20051028
  Serious: Yes (Hospitalization)
  Sender: FDA-Public Use
  Company Number: 2005UW06752

PATIENT
  Age: 57 Year
  Sex: Female

DRUGS (14)
  1. LISINOPRIL [Suspect]
     Route: 048
  2. TOPROL-XL [Suspect]
     Route: 048
  3. AVELOX [Suspect]
     Indication: BRONCHITIS
     Route: 048
     Dates: start: 20050324
  4. NASONEX [Suspect]
     Route: 045
  5. COMBIVENT [Suspect]
     Route: 055
  6. ESTRACE [Suspect]
     Route: 048
  7. COUMADIN [Suspect]
     Route: 048
  8. NASACORT [Suspect]
     Route: 045
  9. NAPROSYN [Suspect]
     Route: 048
  10. TIAZAC [Suspect]
     Route: 048
  11. LIPITOR [Suspect]
     Route: 048
  12. LASIX [Suspect]
     Route: 048
  13. PREDNISONE [Suspect]
     Route: 048
  14. HUMIBID LA [Suspect]
     Route: 048

REACTIONS (2)
  - ABDOMINAL HAEMATOMA [None]
  - BRONCHITIS [None]
